FAERS Safety Report 7572401-4 (Version None)
Quarter: 2011Q2

REPORT INFORMATION
  Report Type: 
  Country: None (occurrence: None)
  Receive Date: 20110624
  Receipt Date: 20110624
  Transmission Date: 20111010
  Serious: Yes (Death, Other)
  Sender: FDA-Public Use
  Company Number: PHHO2011BR03121

PATIENT
  Sex: Female
  Weight: 73 kg

DRUGS (5)
  1. RABEPRAZOLE SODIUM [Concomitant]
     Indication: DYSPEPSIA
  2. DOMPERIDONE [Concomitant]
     Indication: DYSPEPSIA
  3. AMITRIPTYLINE HCL [Concomitant]
  4. FTY [Suspect]
     Indication: MULTIPLE SCLEROSIS
     Dosage: DOSE BLIND
     Route: 048
     Dates: start: 20080828
  5. FTY [Suspect]
     Dosage: 0.5 MG, QD
     Route: 048
     Dates: end: 20110213

REACTIONS (5)
  - CARDIAC PERFORATION [None]
  - CARDIOGENIC SHOCK [None]
  - COMPLETED SUICIDE [None]
  - PERSECUTORY DELUSION [None]
  - DELUSIONAL DISORDER, PERSECUTORY TYPE [None]
